FAERS Safety Report 7998125-7 (Version None)
Quarter: 2011Q4

REPORT INFORMATION
  Report Type: 
  Country: None (occurrence: None)
  Receive Date: 20111221
  Receipt Date: 20110216
  Transmission Date: 20120403
  Serious: No
  Sender: FDA-Public Use
  Company Number: US-GLAXOSMITHKLINE-A0913987A

PATIENT
  Age: 61 Year
  Sex: Female

DRUGS (2)
  1. NO CONCURRENT MEDICATION [Concomitant]
  2. LOVAZA [Suspect]
     Indication: DRY EYE
     Dosage: 1CAP FOUR TIMES PER DAY
     Route: 048
     Dates: start: 20100101

REACTIONS (2)
  - BLOOD CHOLESTEROL INCREASED [None]
  - OFF LABEL USE [None]
